FAERS Safety Report 16031443 (Version 1)
Quarter: 2019Q1

REPORT INFORMATION
  Report Type: Spontaneous
  Country: CO (occurrence: CO)
  Receive Date: 20190304
  Receipt Date: 20190304
  Transmission Date: 20190418
  Serious: Yes (Disabling)
  Sender: FDA-Public Use
  Company Number: CO-ALLERGAN-1902278US

PATIENT
  Sex: Male

DRUGS (1)
  1. OZURDEX [Suspect]
     Active Substance: DEXAMETHASONE
     Indication: DIABETIC RETINAL OEDEMA
     Dosage: 0.7 MG, SINGLE
     Route: 031
     Dates: start: 20190110, end: 20190114

REACTIONS (3)
  - Endophthalmitis [Recovered/Resolved with Sequelae]
  - Eye disorder [Unknown]
  - Blindness [Unknown]

NARRATIVE: CASE EVENT DATE: 20190112
